FAERS Safety Report 6578478-7 (Version None)
Quarter: 2010Q1

REPORT INFORMATION
  Report Type: 
  Country: None (occurrence: None)
  Receive Date: 20100211
  Receipt Date: 20100129
  Transmission Date: 20100710
  Serious: Yes (Hospitalization)
  Sender: FDA-Public Use
  Company Number: PHHY2010BR05331

PATIENT
  Sex: Male

DRUGS (6)
  1. DIOVAN HCT [Suspect]
  2. LIPITOR [Concomitant]
     Dosage: 40 MG, QD
     Route: 048
  3. SELOZOK [Concomitant]
     Dosage: 50 MG, QD
     Route: 048
  4. ASPIRIN [Concomitant]
     Dosage: 100 MG, QD
     Route: 048
  5. VASOGARD [Concomitant]
     Dosage: UNK
  6. VENALOT [Concomitant]
     Dosage: UNK

REACTIONS (1)
  - VASCULAR GRAFT [None]
